FAERS Safety Report 9672345 (Version 1)
Quarter: 2013Q4

REPORT INFORMATION
  Report Type: Not Available
  Country: CA (occurrence: CA)
  Receive Date: 20131106
  Receipt Date: 20131106
  Transmission Date: 20140711
  Serious: Yes (Hospitalization)
  Sender: FDA-Public Use
  Company Number: CA-NAPPMUNDI-CAN-2013-0004524

PATIENT
  Age: 17 Year
  Sex: Male
  Weight: 97.52 kg

DRUGS (8)
  1. DILAUDID [Suspect]
     Indication: PRODUCT USED FOR UNKNOWN INDICATION
  2. HUMIRA [Suspect]
     Indication: PRODUCT USED FOR UNKNOWN INDICATION
     Dosage: 40 MG, WEEKLY
     Route: 058
  3. HUMIRA [Suspect]
     Dosage: 40 MG, EVERY 2 WEEKS
     Route: 058
  4. CALCIUM [Concomitant]
     Indication: PRODUCT USED FOR UNKNOWN INDICATION
  5. CYCLOSPORINE [Concomitant]
     Indication: PRODUCT USED FOR UNKNOWN INDICATION
  6. IRON SULFATE [Concomitant]
     Indication: PRODUCT USED FOR UNKNOWN INDICATION
  7. PREDNISONE [Concomitant]
     Indication: PRODUCT USED FOR UNKNOWN INDICATION
  8. ZINC [Concomitant]
     Indication: PRODUCT USED FOR UNKNOWN INDICATION

REACTIONS (3)
  - Fistula [Unknown]
  - Impaired healing [Unknown]
  - Pruritus allergic [Unknown]
